FAERS Safety Report 12919322 (Version 1)
Quarter: 2016Q4

REPORT INFORMATION
  Report Type: Spontaneous
  Country: US (occurrence: US)
  Receive Date: 20161108
  Receipt Date: 20161108
  Transmission Date: 20170207
  Serious: Yes (Hospitalization, Other)
  Sender: FDA-Public Use
  Company Number: US-APOTEX-2016AP014062

PATIENT
  Age: 54 Year
  Sex: Male

DRUGS (3)
  1. CLONAZEPAM TABLETS USP [Suspect]
     Active Substance: CLONAZEPAM
     Indication: PRODUCT USED FOR UNKNOWN INDICATION
     Dosage: UNK UNK,
     Route: 065
  2. ARMODAFINIL. [Suspect]
     Active Substance: ARMODAFINIL
     Indication: PRODUCT USED FOR UNKNOWN INDICATION
     Dosage: 1200 MG, QD
     Route: 065
  3. MODAFINIL TABLETS USP [Suspect]
     Active Substance: MODAFINIL
     Indication: DRUG ABUSE
     Dosage: UNK
     Route: 065

REACTIONS (8)
  - Paranoia [Unknown]
  - Seizure [Unknown]
  - Drug dependence [Unknown]
  - Hyponatraemia [Recovered/Resolved]
  - Drug abuse [Unknown]
  - Psychotic disorder [Recovered/Resolved]
  - Anxiety [Unknown]
  - Drug withdrawal syndrome [Unknown]
